FAERS Safety Report 9326109 (Version 1)
Quarter: 2013Q2

REPORT INFORMATION
  Report Type: Spontaneous
  Country: ES (occurrence: ES)
  Receive Date: 20130604
  Receipt Date: 20130604
  Transmission Date: 20140414
  Serious: Yes (Death, Other)
  Sender: FDA-Public Use
  Company Number: ES-B.I. PHARMACEUTICALS,INC./RIDGEFIELD-2013-ES-00262ES

PATIENT
  Age: 76 Year
  Sex: Male

DRUGS (14)
  1. PRADAXA [Suspect]
     Indication: ANTICOAGULANT THERAPY
     Route: 048
     Dates: start: 201112, end: 20130325
  2. ADIRO [Suspect]
     Route: 048
     Dates: start: 20120608, end: 20130325
  3. ALOPURINOL [Concomitant]
     Dosage: 100 MG
     Route: 048
     Dates: start: 20130325
  4. LORMETAZEPAM [Concomitant]
     Route: 048
     Dates: end: 20130325
  5. OMEPRAZOL [Concomitant]
     Route: 048
     Dates: end: 20130325
  6. EPLERENONA [Concomitant]
     Route: 048
     Dates: end: 20130325
  7. PREDNISONA [Concomitant]
     Route: 048
     Dates: end: 20130325
  8. METAMIZOL [Concomitant]
     Route: 048
     Dates: end: 20130325
  9. DIGOXINA [Concomitant]
     Dosage: 0.12 MG
     Route: 048
     Dates: start: 20110608, end: 20130325
  10. EMCONCOR [Concomitant]
     Dosage: 5 MG
     Route: 048
     Dates: end: 20130325
  11. HYDREA [Concomitant]
     Route: 048
     Dates: end: 20130325
  12. SEGURIL [Concomitant]
     Route: 048
     Dates: start: 20110608, end: 20130325
  13. SEROQUEL [Concomitant]
     Dosage: 200 MG
     Route: 048
     Dates: end: 20130325
  14. TOVIAZ [Concomitant]
     Dosage: 8 MG
     Route: 048
     Dates: end: 20130325

REACTIONS (4)
  - Rectal haemorrhage [Fatal]
  - Colitis ischaemic [Fatal]
  - Pneumatosis [Fatal]
  - Acute prerenal failure [Fatal]
